FAERS Safety Report 8313361-8 (Version None)
Quarter: 2012Q2

REPORT INFORMATION
  Report Type: 
  Country: None (occurrence: None)
  Receive Date: 20120426
  Receipt Date: 20120419
  Transmission Date: 20120825
  Serious: Yes (Other)
  Sender: FDA-Public Use
  Company Number: PHEH2012US008457

PATIENT
  Sex: Female
  Weight: 54.422 kg

DRUGS (7)
  1. LORAZEPAM [Concomitant]
     Indication: SLEEP DISORDER
     Dosage: 1 MG, QD
  2. TEGRETOL [Suspect]
     Indication: DEPRESSION
     Dosage: 200 MG, QD
  3. OMEPRAZOLE [Concomitant]
     Indication: GASTRIC DISORDER
     Dosage: UNK UKN, UNK
  4. CENTRUM [Concomitant]
     Dosage: UNK UKN, UNK
  5. GABAPENTIN [Suspect]
     Indication: NEUROPATHY PERIPHERAL
     Dosage: 300 MG, BID
     Dates: start: 20111001
  6. LEVOTHYROXINE SODIUM [Concomitant]
     Indication: THYROID DISORDER
     Dosage: 50 UG, QD
  7. ASPIRIN [Concomitant]
     Indication: PROPHYLAXIS
     Dosage: 81 MG, QD

REACTIONS (1)
  - APHONIA [None]
